FAERS Safety Report 6925065-4 (Version None)
Quarter: 2010Q3

REPORT INFORMATION
  Report Type: 
  Country: None (occurrence: None)
  Receive Date: 20100816
  Receipt Date: 20100809
  Transmission Date: 20110219
  Serious: Yes (Other)
  Sender: FDA-Public Use
  Company Number: US-SANOFI-AVENTIS-2010SA047636

PATIENT
  Age: 60 Year
  Sex: Female

DRUGS (2)
  1. LANTUS [Suspect]
     Dosage: 12 TO 14 UNITS DAILY
     Route: 058
  2. SOLOSTAR [Suspect]
     Dosage: 12 TO 14 UNITS DAILY
     Route: 058

REACTIONS (2)
  - EAR CONGESTION [None]
  - NASOPHARYNGITIS [None]
